FAERS Safety Report 4852824-4 (Version None)
Quarter: 2005Q4

REPORT INFORMATION
  Report Type: 
  Country: None (occurrence: None)
  Receive Date: 20051212
  Receipt Date: 20051212
  Transmission Date: 20060501
  Serious: Yes (Other)
  Sender: FDA-Public Use
  Company Number: None

PATIENT
  Sex: Male
  Weight: 95 kg

DRUGS (1)
  1. GRISEOFULVIN [Suspect]
     Dosage: 500MG  TWICE A DAY PO
     Route: 048
     Dates: start: 20051207, end: 20051209

REACTIONS (1)
  - HEADACHE [None]
